FAERS Safety Report 5916223-6 (Version None)
Quarter: 2008Q4

REPORT INFORMATION
  Report Type: 
  Country: None (occurrence: None)
  Receive Date: 20081013
  Receipt Date: 20081001
  Transmission Date: 20090506
  Serious: Yes (Hospitalization)
  Sender: FDA-Public Use
  Company Number: FR-ABBOTT-08P-056-0479772-00

PATIENT
  Age: 59 Year
  Sex: Male

DRUGS (8)
  1. KALETRA [Suspect]
     Indication: HIV INFECTION
     Route: 048
     Dates: start: 20080209
  2. FLUINDIONE [Interacting]
     Indication: PULMONARY EMBOLISM
     Route: 048
     Dates: start: 20080719, end: 20080728
  3. FLUINDIONE [Interacting]
     Route: 048
     Dates: start: 20080728
  4. TINZAPARINE SODIC [Interacting]
     Indication: PULMONARY EMBOLISM
     Dates: start: 20080713, end: 20080722
  5. TINZAPARINE SODIC [Interacting]
     Dates: start: 20080728
  6. TMC 125 [Concomitant]
     Indication: HIV INFECTION
     Route: 048
     Dates: start: 20061212
  7. TINZAPARINE SODIC [Concomitant]
     Indication: DRUG USE FOR UNKNOWN INDICATION
     Dates: start: 20080713, end: 20080722
  8. TINZAPARINE SODIC [Concomitant]
     Dates: start: 20080728

REACTIONS (4)
  - DRUG INEFFECTIVE [None]
  - DRUG INTERACTION [None]
  - INTERNATIONAL NORMALISED RATIO ABNORMAL [None]
  - PULMONARY EMBOLISM [None]
